FAERS Safety Report 9455703 (Version 1)
Quarter: 2013Q3

REPORT INFORMATION
  Report Type: Spontaneous
  Country: ES (occurrence: ES)
  Receive Date: 20130813
  Receipt Date: 20130813
  Transmission Date: 20140515
  Serious: Yes (Death, Congenital Anomaly, Other)
  Sender: FDA-Public Use
  Company Number: ES-UCBSA-094873

PATIENT
  Sex: 0

DRUGS (2)
  1. VIMPAT [Suspect]
     Indication: EPILEPSY
     Dosage: 100/150/150 MG
     Route: 064
     Dates: end: 20130309
  2. TRILEPTAL [Concomitant]
     Indication: EPILEPSY
     Route: 064
     Dates: end: 20130309

REACTIONS (3)
  - Skull malformation [Fatal]
  - Spine malformation [Fatal]
  - Foetal exposure during pregnancy [Recovered/Resolved]
